FAERS Safety Report 17700069 (Version 1)
Quarter: 2020Q2

REPORT INFORMATION
  Report Type: Spontaneous
  Country: US (occurrence: US)
  Receive Date: 20200423
  Receipt Date: 20200423
  Transmission Date: 20200714
  Serious: No
  Sender: FDA-Public Use
  Company Number: US-ASTELLAS-2019US043486

PATIENT
  Sex: Female

DRUGS (4)
  1. LEXISCAN [Suspect]
     Active Substance: REGADENOSON
     Indication: CARDIAC STRESS TEST
     Dosage: 0.08MG/ML, (RECEIVED ABOUT 1/4 OF THE DOSE) UNKNOWN FREQ.
     Route: 065
     Dates: start: 20191030, end: 20191030
  2. LEXISCAN [Suspect]
     Active Substance: REGADENOSON
     Indication: CARDIAC STRESS TEST
     Dosage: 0.08MG/ML, (RECEIVED ABOUT 1/4 OF THE DOSE) UNKNOWN FREQ.
     Route: 065
     Dates: start: 20191030, end: 20191030
  3. LEXISCAN [Suspect]
     Active Substance: REGADENOSON
     Indication: CARDIAC STRESS TEST
     Dosage: 0.08MG/ML, (RECEIVED ABOUT 1/4 OF THE DOSE) UNKNOWN FREQ.
     Route: 065
     Dates: start: 20191030, end: 20191030
  4. LEXISCAN [Suspect]
     Active Substance: REGADENOSON
     Indication: CARDIAC STRESS TEST
     Dosage: 0.08MG/ML, (RECEIVED ABOUT 1/4 OF THE DOSE) UNKNOWN FREQ.
     Route: 065
     Dates: start: 20191030, end: 20191030

REACTIONS (3)
  - Injection site extravasation [Unknown]
  - Heart rate increased [Unknown]
  - Blood pressure increased [Unknown]

NARRATIVE: CASE EVENT DATE: 20191030
